FAERS Safety Report 6845587-4 (Version None)
Quarter: 2010Q3

REPORT INFORMATION
  Report Type: 
  Country: None (occurrence: None)
  Receive Date: 20100715
  Receipt Date: 20070827
  Transmission Date: 20110219
  Serious: No
  Sender: FDA-Public Use
  Company Number: US-PFIZER INC-2007071944

PATIENT
  Sex: Female
  Weight: 83 kg

DRUGS (4)
  1. CHANTIX [Suspect]
     Indication: SMOKING CESSATION THERAPY
     Dates: start: 20070601, end: 20070801
  2. METFORMIN HCL [Concomitant]
     Indication: DIABETES MELLITUS
  3. POTASSIUM CHLORIDE [Concomitant]
  4. ALL OTHER THERAPEUTIC PRODUCTS [Concomitant]
     Indication: HYPERTENSION

REACTIONS (3)
  - FATIGUE [None]
  - INSOMNIA [None]
  - SOMNOLENCE [None]
